FAERS Safety Report 26071619 (Version 1)
Quarter: 2025Q4

REPORT INFORMATION
  Report Type: Spontaneous
  Country: JP (occurrence: JP)
  Receive Date: 20251120
  Receipt Date: 20251120
  Transmission Date: 20260117
  Serious: Yes (Other)
  Sender: NOVARTIS
  Company Number: JP-002147023-NVSJ2025JP011095

PATIENT
  Age: 6 Decade
  Sex: Female

DRUGS (1)
  1. OFATUMUMAB [Suspect]
     Active Substance: OFATUMUMAB
     Indication: Multiple sclerosis
     Dosage: UNK
     Route: 065

REACTIONS (5)
  - Multiple sclerosis relapse [Unknown]
  - Schizophrenia [Unknown]
  - Hallucination [Unknown]
  - Delusion [Unknown]
  - Affect lability [Unknown]
